FAERS Safety Report 4653454-X (Version None)
Quarter: 2005Q2

REPORT INFORMATION
  Report Type: 
  Country: None (occurrence: None)
  Receive Date: 20050505
  Receipt Date: 20050502
  Transmission Date: 20051028
  Serious: Yes (Hospitalization)
  Sender: FDA-Public Use
  Company Number: 153

PATIENT
  Age: 61 Year
  Sex: Male

DRUGS (6)
  1. MELPHALAN [Suspect]
     Indication: MULTIPLE MYELOMA
     Dosage: 400MG SINGLE DOSE
     Route: 042
     Dates: start: 20041208
  2. THALIDOMIDE [Suspect]
     Indication: MULTIPLE MYELOMA
     Dosage: 50MG PER DAY
     Route: 048
     Dates: start: 20041103, end: 20041126
  3. DEXAMETHASONE [Suspect]
     Indication: MULTIPLE MYELOMA
     Dosage: 40MG PER DAY
     Route: 048
     Dates: start: 20041207, end: 20041210
  4. ACYCLOVIR [Concomitant]
     Dosage: 200MG TWICE PER DAY
  5. PRILOSEC [Concomitant]
     Dosage: 20MG PER DAY
  6. LIPITOR [Concomitant]
     Dosage: 20MG PER DAY

REACTIONS (3)
  - ATRIAL FIBRILLATION [None]
  - DIZZINESS [None]
  - HYPOTENSION [None]
